FAERS Safety Report 24707978 (Version 1)
Quarter: 2024Q4

REPORT INFORMATION
  Report Type: Spontaneous
  Country: US (occurrence: US)
  Receive Date: 20241206
  Receipt Date: 20241206
  Transmission Date: 20250114
  Serious: Yes (Hospitalization)
  Sender: ELI LILLY AND COMPANY
  Company Number: US-Merck Healthcare KGaA-2024062980

PATIENT
  Age: 66 Year
  Sex: Male

DRUGS (3)
  1. CETUXIMAB [Suspect]
     Active Substance: CETUXIMAB
     Indication: Squamous cell carcinoma of the tongue
     Dosage: UNK, UNKNOWN
     Route: 065
  2. PEMBROLIZUMAB [Suspect]
     Active Substance: PEMBROLIZUMAB
     Indication: Squamous cell carcinoma of the tongue
     Dosage: UNK, UNKNOWN
     Route: 065
  3. ENOXAPARIN [Suspect]
     Active Substance: ENOXAPARIN
     Indication: Embolic stroke
     Dosage: UNK, ORAL ANTICOAGULANT TREATMENT
     Route: 048

REACTIONS (5)
  - Posterior reversible encephalopathy syndrome [Unknown]
  - Muscle spasms [Recovered/Resolved]
  - Epistaxis [Recovered/Resolved]
  - Hypomagnesaemia [Unknown]
  - Off label use [Unknown]
